FAERS Safety Report 9375535 (Version 1)
Quarter: 2013Q2

REPORT INFORMATION
  Report Type: Spontaneous
  Country: US (occurrence: US)
  Receive Date: 20130628
  Receipt Date: 20130628
  Transmission Date: 20140414
  Serious: Yes (Other)
  Sender: FDA-Public Use
  Company Number: US-ASTRAZENECA-2013SE49186

PATIENT
  Age: 83 Year
  Sex: Female
  Weight: 53.1 kg

DRUGS (4)
  1. FASLODEX [Suspect]
     Indication: BREAST CANCER METASTATIC
     Route: 030
     Dates: start: 201008
  2. TAMOXIFEN [Suspect]
     Indication: BREAST CANCER
     Route: 048
     Dates: start: 2008, end: 201008
  3. AMLODIPINE [Concomitant]
     Indication: HYPERTENSION
  4. CREON 10 [Concomitant]
     Indication: DYSPEPSIA
     Dosage: BID

REACTIONS (4)
  - Fracture [Unknown]
  - Neoplasm malignant [Unknown]
  - Musculoskeletal chest pain [Not Recovered/Not Resolved]
  - Off label use [Unknown]
